APPROVED DRUG PRODUCT: ARISTOCORT
Active Ingredient: TRIAMCINOLONE
Strength: 2MG
Dosage Form/Route: TABLET;ORAL
Application: N011161 | Product #004
Applicant: ASTELLAS PHARMA US INC
Approved: Approved Prior to Jan 1, 1982 | RLD: No | RS: No | Type: DISCN